FAERS Safety Report 18283334 (Version 1)
Quarter: 2020Q3

REPORT INFORMATION
  Report Type: Spontaneous
  Country: DE (occurrence: DE)
  Receive Date: 20200918
  Receipt Date: 20200918
  Transmission Date: 20201103
  Serious: Yes (Other)
  Sender: FDA-Public Use
  Company Number: DE-FERRINGPH-2020FE06290

PATIENT
  Age: 55 Year
  Sex: Female

DRUGS (3)
  1. CRH [CORTICORELIN] [Suspect]
     Active Substance: CORTICORELIN
     Indication: CORTICOTROPIN-RELEASING HORMONE STIMULATION TEST
     Dosage: 1 AMPOULE, ONCE
     Route: 065
     Dates: start: 20200827, end: 20200827
  2. THYROXIN [Concomitant]
     Active Substance: LEVOTHYROXINE
     Indication: AUTOIMMUNE THYROIDITIS
     Dosage: 25 UG, IN THE MORNING
  3. EUTHYROX [Concomitant]
     Active Substance: LEVOTHYROXINE SODIUM
     Indication: AUTOIMMUNE THYROIDITIS
     Dosage: 75 UG, IN THE MORNING

REACTIONS (2)
  - Loss of consciousness [Recovered/Resolved]
  - Anaphylactic shock [Recovered/Resolved]

NARRATIVE: CASE EVENT DATE: 20200827
